FAERS Safety Report 12869902 (Version 1)
Quarter: 2016Q4

REPORT INFORMATION
  Report Type: Spontaneous
  Country: CA (occurrence: CA)
  Receive Date: 20161021
  Receipt Date: 20161021
  Transmission Date: 20170207
  Serious: Yes (Other)
  Sender: FDA-Public Use
  Company Number: CA-AMGEN-CANSP2016142898

PATIENT
  Age: 26 Year
  Sex: Female

DRUGS (8)
  1. FUROSEMIDE. [Concomitant]
     Active Substance: FUROSEMIDE
     Dosage: UNK
  2. HYDROMORPHONE [Concomitant]
     Active Substance: HYDROMORPHONE
     Dosage: UNK
  3. SENSIPAR [Suspect]
     Active Substance: CINACALCET HYDROCHLORIDE
     Dosage: 30 MG, BID
     Route: 065
  4. CALCITONIN [Concomitant]
     Active Substance: CALCITONIN
     Dosage: 8 IU/KG, QID
  5. ONDANSETRON [Concomitant]
     Active Substance: ONDANSETRON
  6. SENSIPAR [Suspect]
     Active Substance: CINACALCET HYDROCHLORIDE
     Indication: PRODUCT USED FOR UNKNOWN INDICATION
     Dosage: 30 MG, QD
     Route: 065
  7. SALINE [Concomitant]
     Active Substance: SODIUM CHLORIDE
     Dosage: UNK
  8. DIMENHYDRINATE. [Concomitant]
     Active Substance: DIMENHYDRINATE
     Dosage: UNK

REACTIONS (6)
  - Abortion induced [Unknown]
  - Arthralgia [Recovered/Resolved]
  - Hypercalcaemia [Recovered/Resolved]
  - Drug ineffective [Unknown]
  - Pancreatitis [Recovered/Resolved]
  - Maternal exposure during pregnancy [Unknown]
